FAERS Safety Report 13229949 (Version 2)
Quarter: 2017Q2

REPORT INFORMATION
  Report Type: Spontaneous
  Country: US (occurrence: US)
  Receive Date: 20170214
  Receipt Date: 20170411
  Transmission Date: 20170830
  Serious: No
  Sender: FDA-Public Use
  Company Number: US-PFIZER INC-2017061397

PATIENT
  Age: 54 Year
  Sex: Female
  Weight: 66 kg

DRUGS (1)
  1. PREMARIN [Suspect]
     Active Substance: ESTROGENS, CONJUGATED
     Indication: VULVOVAGINAL DRYNESS
     Dosage: 2G TWICE WEEKLY BEFORE BED
     Route: 067

REACTIONS (4)
  - Intentional product misuse [Unknown]
  - Product quality issue [Unknown]
  - Vaginal disorder [Unknown]
  - Product use issue [Unknown]

NARRATIVE: CASE EVENT DATE: 2015
